FAERS Safety Report 25865924 (Version 2)
Quarter: 2025Q4

REPORT INFORMATION
  Report Type: Spontaneous
  Country: AU (occurrence: AU)
  Receive Date: 20250930
  Receipt Date: 20251030
  Transmission Date: 20260117
  Serious: Yes (Death, Hospitalization, Other)
  Sender: JOHNSON AND JOHNSON
  Company Number: AU-JNJFOC-20250940346

PATIENT
  Age: 52 Year
  Sex: Male

DRUGS (1)
  1. APALUTAMIDE [Suspect]
     Active Substance: APALUTAMIDE
     Indication: Hormone-refractory prostate cancer
     Route: 048
     Dates: start: 202202

REACTIONS (9)
  - Adenocarcinoma [Fatal]
  - Lung neoplasm malignant [Fatal]
  - Death [Fatal]
  - Metastases to pelvis [Unknown]
  - Paraesthesia [Recovering/Resolving]
  - Pilomatrix carcinoma [Unknown]
  - Off label use [Unknown]
  - Bone pain [Unknown]
  - Musculoskeletal pain [Recovered/Resolved]

NARRATIVE: CASE EVENT DATE: 20220201
